FAERS Safety Report 4757685-X (Version None)
Quarter: 2005Q3

REPORT INFORMATION
  Report Type: 
  Country: None (occurrence: None)
  Receive Date: 20050831
  Receipt Date: 20050819
  Transmission Date: 20060218
  Serious: Yes (Hospitalization)
  Sender: FDA-Public Use
  Company Number: PFM-E-20050090

PATIENT
  Age: 88 Year
  Sex: Male

DRUGS (9)
  1. CIBLOR [Suspect]
     Indication: BRONCHITIS
     Dosage: 4TAB PER DAY
     Dates: start: 20050322
  2. PREVISCAN [Suspect]
     Indication: DRUG USE FOR UNKNOWN INDICATION
     Dosage: 20MG PER DAY
     Route: 048
     Dates: start: 20050325
  3. BRONCHOKOD [Suspect]
     Indication: DRUG USE FOR UNKNOWN INDICATION
     Dosage: 3U PER DAY
     Route: 048
     Dates: start: 20050322
  4. MODOPAR [Concomitant]
     Indication: DRUG USE FOR UNKNOWN INDICATION
     Dosage: 1U THREE TIMES PER DAY
  5. NEXIUM [Concomitant]
     Indication: DRUG USE FOR UNKNOWN INDICATION
     Dosage: 40MG PER DAY
  6. DAFLON [Concomitant]
     Indication: DRUG USE FOR UNKNOWN INDICATION
  7. FORLAX [Concomitant]
     Indication: DRUG USE FOR UNKNOWN INDICATION
  8. ANDROCUR [Concomitant]
     Indication: DRUG USE FOR UNKNOWN INDICATION
     Dosage: 50MG THREE TIMES PER DAY
     Route: 048
  9. STILNOX [Concomitant]
     Indication: DRUG USE FOR UNKNOWN INDICATION

REACTIONS (5)
  - CONSTIPATION [None]
  - DRUG INTERACTION [None]
  - EXTRAPYRAMIDAL DISORDER [None]
  - HYPOPROTHROMBINAEMIA [None]
  - RECTAL HAEMORRHAGE [None]
